FAERS Safety Report 4430757-5 (Version None)
Quarter: 2004Q3

REPORT INFORMATION
  Report Type: 
  Country: None (occurrence: None)
  Receive Date: 20040818
  Receipt Date: 20040730
  Transmission Date: 20050211
  Serious: Yes (Death)
  Sender: FDA-Public Use
  Company Number: GBS040815357

PATIENT
  Age: 64 Year
  Sex: Female
  Weight: 70 kg

DRUGS (11)
  1. XIGRIS [Suspect]
     Indication: STAPHYLOCOCCAL SEPSIS
     Dosage: 1.6 MG/HR
     Dates: start: 20040724
  2. NORADRENALINE [Concomitant]
  3. POTTASSIUM PHOSPHATE [Concomitant]
  4. FLUCLOXACILLIN [Concomitant]
  5. GENTAMYCIN SULFATE [Concomitant]
  6. POTASSIUM CHLORIDE [Concomitant]
  7. METOCLOPRAMIDE [Concomitant]
  8. OEMPRAZOLE (OMEPRAZOLE) [Concomitant]
  9. ACETAMINOPHEN [Concomitant]
  10. RIFAMPICIN [Concomitant]
  11. HEPARIN [Concomitant]

REACTIONS (3)
  - ACTIVATED PARTIAL THROMBOPLASTIN TIME PROLONGED [None]
  - HAEMORRHAGE INTRACRANIAL [None]
  - INTRACRANIAL HYPOTENSION [None]
